FAERS Safety Report 17265776 (Version 1)
Quarter: 2020Q1

REPORT INFORMATION
  Report Type: Spontaneous
  Country: AU (occurrence: AU)
  Receive Date: 20200114
  Receipt Date: 20200114
  Transmission Date: 20200409
  Serious: Yes (Other)
  Sender: FDA-Public Use
  Company Number: AU-SA-2019SA351849

PATIENT
  Sex: Male
  Weight: 75 kg

DRUGS (1)
  1. ALEMTUZUMAB [Suspect]
     Active Substance: ALEMTUZUMAB
     Dosage: UNK UNK, UNK
     Route: 065

REACTIONS (5)
  - Odynophagia [Recovering/Resolving]
  - Oropharyngeal pain [Recovering/Resolving]
  - Pain in jaw [Recovering/Resolving]
  - Ear pain [Recovering/Resolving]
  - Otitis media [Recovering/Resolving]
